FAERS Safety Report 7174777-9 (Version None)
Quarter: 2010Q4

REPORT INFORMATION
  Report Type: 
  Country: None (occurrence: None)
  Receive Date: 20101219
  Receipt Date: 20100408
  Transmission Date: 20110411
  Serious: No
  Sender: FDA-Public Use
  Company Number: US-AMGEN-KDL404482

PATIENT

DRUGS (1)
  1. ENBREL [Suspect]
     Indication: RHEUMATOID ARTHRITIS
     Dosage: 50 MG, QWK
     Route: 058

REACTIONS (5)
  - COLONIC POLYP [None]
  - FURUNCLE [None]
  - OLIGOMENORRHOEA [None]
  - PRURITUS [None]
  - STAPHYLOCOCCAL INFECTION [None]
